FAERS Safety Report 5787698-0 (Version None)
Quarter: 2008Q2

REPORT INFORMATION
  Report Type: 
  Country: None (occurrence: None)
  Receive Date: 20080625
  Receipt Date: 20071022
  Transmission Date: 20081010
  Serious: No
  Sender: FDA-Public Use
  Company Number: US-ASTRAZENECA-2007UW24592

PATIENT
  Age: 53 Year
  Sex: Female
  Weight: 58.5 kg

DRUGS (2)
  1. PULMICORT FLEXHALER [Suspect]
     Indication: ILL-DEFINED DISORDER
     Dosage: 2 PUFFS ONCE A DAY
     Route: 055
     Dates: start: 20070701
  2. PEPCID [Concomitant]

REACTIONS (1)
  - DYSPNOEA [None]
